FAERS Safety Report 6265796-5 (Version None)
Quarter: 2009Q3

REPORT INFORMATION
  Report Type: 
  Country: None (occurrence: None)
  Receive Date: 20090713
  Receipt Date: 20090701
  Transmission Date: 20100115
  Serious: Yes (Death, Hospitalization)
  Sender: FDA-Public Use
  Company Number: A0744271A

PATIENT
  Age: 63 Year
  Sex: Male
  Weight: 53.2 kg

DRUGS (13)
  1. AVANDIA [Suspect]
     Dosage: 4MG TWICE PER DAY
     Route: 048
     Dates: start: 20030101, end: 20060101
  2. PREVACID [Concomitant]
  3. MEGACE [Concomitant]
  4. PROZAC [Concomitant]
  5. PRANDIN [Concomitant]
  6. NEPHROCAPS [Concomitant]
  7. NIFEDIPINE [Concomitant]
  8. XANAX [Concomitant]
  9. COUMADIN [Concomitant]
  10. RENAGEL [Concomitant]
  11. VITAMINS + MINERALS [Concomitant]
  12. MULTI-VITAMINS [Concomitant]
  13. HYDROCODONE BITARTRATE [Concomitant]

REACTIONS (3)
  - CARDIO-RESPIRATORY ARREST [None]
  - PNEUMONIA [None]
  - RENAL FAILURE CHRONIC [None]
